FAERS Safety Report 13172448 (Version 2)
Quarter: 2017Q1

REPORT INFORMATION
  Report Type: Spontaneous
  Country: JP (occurrence: JP)
  Receive Date: 20170201
  Receipt Date: 20170221
  Transmission Date: 20170428
  Serious: Yes (Other)
  Sender: FDA-Public Use
  Company Number: JP-OTSUKA-2017_001728

PATIENT
  Age: 74 Year
  Sex: Male

DRUGS (3)
  1. ACETYLSALICYLIC ACID [Concomitant]
     Active Substance: ASPIRIN
     Indication: VASCULAR STENT THROMBOSIS
     Dosage: 81 MG, DAILY DOSE
     Route: 065
  2. SARPOGRELATE HYDROCHLORIDE [Concomitant]
     Active Substance: SARPOGRELATE
     Indication: VASCULAR STENT THROMBOSIS
     Dosage: 300 MG, DAILY DOSE
     Route: 065
  3. CILOSTAZOL. [Suspect]
     Active Substance: CILOSTAZOL
     Indication: VASCULAR STENT THROMBOSIS
     Dosage: 200 MG, DAILY DOSE
     Route: 048

REACTIONS (3)
  - Melaena [Unknown]
  - Off label use [Unknown]
  - Shock haemorrhagic [Unknown]
